FAERS Safety Report 7263525-X (Version None)
Quarter: 2011Q1

REPORT INFORMATION
  Report Type: 
  Country: None (occurrence: None)
  Receive Date: 20110130
  Receipt Date: 20101202
  Transmission Date: 20110831
  Serious: Yes (Hospitalization)
  Sender: FDA-Public Use
  Company Number: US-ABBOTT-10P-163-0689458-00

PATIENT
  Sex: Female
  Weight: 78.088 kg

DRUGS (3)
  1. PREDNISONE [Concomitant]
     Indication: PSORIATIC ARTHROPATHY
     Dates: start: 20090101
  2. HUMIRA [Suspect]
     Dates: start: 20100328, end: 20101115
  3. HUMIRA [Suspect]
     Indication: PSORIATIC ARTHROPATHY
     Dates: start: 20090401, end: 20090901

REACTIONS (3)
  - CELLULITIS [None]
  - TREMOR [None]
  - FEELING COLD [None]
